FAERS Safety Report 4973402-2 (Version None)
Quarter: 2006Q2

REPORT INFORMATION
  Report Type: 
  Country: None (occurrence: None)
  Receive Date: 20060413
  Receipt Date: 20060413
  Transmission Date: 20061013
  Serious: Yes (Hospitalization)
  Sender: FDA-Public Use
  Company Number: None

PATIENT
  Sex: Female
  Weight: 63.5036 kg

DRUGS (1)
  1. LYRICA [Suspect]
     Indication: BACK PAIN
     Dosage: BID PO
     Route: 048

REACTIONS (4)
  - CEREBROVASCULAR SPASM [None]
  - COMPUTERISED TOMOGRAM ABNORMAL [None]
  - HEADACHE [None]
  - RED BLOOD CELLS CSF POSITIVE [None]
